FAERS Safety Report 11879340 (Version 2)
Quarter: 2016Q1

REPORT INFORMATION
  Report Type: Spontaneous
  Country: BR (occurrence: BR)
  Receive Date: 20151230
  Receipt Date: 20160111
  Transmission Date: 20160526
  Serious: Yes (Hospitalization, Other)
  Sender: FDA-Public Use
  Company Number: BR-AMGEN-BRASP2015140098

PATIENT
  Age: 79 Year
  Sex: Female

DRUGS (17)
  1. GRANULOKINE [Suspect]
     Active Substance: FILGRASTIM
     Indication: FEBRILE NEUTROPENIA
     Dosage: UNK
     Route: 065
  2. VANCOMYCIN [Concomitant]
     Active Substance: VANCOMYCIN
     Dosage: UNK
  3. CYTARABINE. [Suspect]
     Active Substance: CYTARABINE
     Indication: ACUTE MYELOID LEUKAEMIA
     Dosage: 100 MG, 2 IN 1 D
     Route: 042
     Dates: start: 20130509, end: 20130514
  4. AMPHOTERICIN B. [Concomitant]
     Active Substance: AMPHOTERICIN B
     Dosage: UNK
  5. DECITABINE. [Concomitant]
     Active Substance: DECITABINE
     Dosage: UNK
     Dates: end: 201401
  6. VIDAZA [Concomitant]
     Active Substance: AZACITIDINE
     Dosage: UNK
     Dates: start: 20141124
  7. CEFEPIME [Suspect]
     Active Substance: CEFEPIME HYDROCHLORIDE
     Indication: THROMBOCYTOPENIA
  8. IDARUBICIN HYDROCHLORIDE. [Suspect]
     Active Substance: IDARUBICIN HYDROCHLORIDE
     Indication: ACUTE MYELOID LEUKAEMIA
     Dosage: 100 MG/M2, UNK
     Route: 042
     Dates: start: 20141124
  9. MEROPENEM. [Concomitant]
     Active Substance: MEROPENEM
     Dosage: UNK
  10. ESOMEPRAZOLE [Concomitant]
     Active Substance: ESOMEPRAZOLE
     Dosage: UNK
  11. CEFEPIME [Suspect]
     Active Substance: CEFEPIME HYDROCHLORIDE
     Indication: FEBRILE NEUTROPENIA
     Dosage: UNK
     Route: 065
  12. PURINETHOL [Concomitant]
     Active Substance: MERCAPTOPURINE
     Dosage: UNK
     Dates: start: 20130509, end: 20130514
  13. CYTARABINE. [Suspect]
     Active Substance: CYTARABINE
     Dosage: DAY 1 TO DAY 3 (160.7 MG)
     Route: 042
     Dates: start: 20150713, end: 20150717
  14. GRANULOKINE [Suspect]
     Active Substance: FILGRASTIM
     Indication: THROMBOCYTOPENIA
  15. CYTARABINE. [Suspect]
     Active Substance: CYTARABINE
     Dosage: DAY 1 TO DAY 5 (100 MG/M2)
     Route: 042
     Dates: start: 20141124
  16. IDARUBICIN HYDROCHLORIDE. [Suspect]
     Active Substance: IDARUBICIN HYDROCHLORIDE
     Dosage: DAY 1 TO DAY 3 (160.7 MG)
     Route: 042
     Dates: start: 20150713, end: 20150717
  17. EUTHYROX [Concomitant]
     Active Substance: LEVOTHYROXINE SODIUM
     Dosage: UNK

REACTIONS (5)
  - Lung infiltration [Recovered/Resolved]
  - Therapeutic response decreased [Unknown]
  - Pleural effusion [Recovered/Resolved]
  - Febrile neutropenia [Unknown]
  - Thrombocytopenia [Unknown]
